FAERS Safety Report 8384314-9 (Version None)
Quarter: 2012Q2

REPORT INFORMATION
  Report Type: 
  Country: None (occurrence: None)
  Receive Date: 20120524
  Receipt Date: 20120515
  Transmission Date: 20120825
  Serious: Yes (Other)
  Sender: FDA-Public Use
  Company Number: US-ASTRAZENECA-2012SE31664

PATIENT
  Age: 0 Week

DRUGS (1)
  1. PRILOSEC OTC [Suspect]
     Dosage: ONCE OR TWICE DAILY
     Route: 048

REACTIONS (1)
  - FOETAL HEART RATE DECREASED [None]
